FAERS Safety Report 13757802 (Version 2)
Quarter: 2017Q3

REPORT INFORMATION
  Report Type: Report from Study
  Country: None (occurrence: BR)
  Receive Date: 20170717
  Receipt Date: 20170831
  Transmission Date: 20171127
  Serious: Yes (Hospitalization, Disabling, Other)
  Sender: FDA-Public Use
  Company Number: BR-ABBVIE-17K-020-2023762-00

PATIENT
  Sex: Female

DRUGS (2)
  1. INSULIN [Concomitant]
     Active Substance: INSULIN NOS
     Indication: DIABETES MELLITUS
  2. HUMIRA [Suspect]
     Active Substance: ADALIMUMAB
     Indication: RHEUMATOID ARTHRITIS
     Route: 058
     Dates: start: 20170516, end: 2017

REACTIONS (20)
  - Rheumatoid nodule [Unknown]
  - Tendon rupture [Unknown]
  - Wound secretion [Unknown]
  - Musculoskeletal stiffness [Unknown]
  - Weight increased [Unknown]
  - Vomiting [Unknown]
  - Erysipelas [Recovering/Resolving]
  - Peripheral swelling [Unknown]
  - Erysipelas [Recovered/Resolved]
  - Injection site pain [Unknown]
  - Gait inability [Not Recovered/Not Resolved]
  - Erythema [Unknown]
  - Skin bacterial infection [Unknown]
  - Erysipelas [Unknown]
  - Nausea [Unknown]
  - Skin discolouration [Unknown]
  - Rheumatoid arthritis [Unknown]
  - Loss of personal independence in daily activities [Not Recovered/Not Resolved]
  - Hyperkeratosis [Not Recovered/Not Resolved]
  - Retching [Unknown]

NARRATIVE: CASE EVENT DATE: 2017
